FAERS Safety Report 4550378-3 (Version None)
Quarter: 2005Q1

REPORT INFORMATION
  Report Type: 
  Country: None (occurrence: None)
  Receive Date: 20050112
  Receipt Date: 20041214
  Transmission Date: 20050727
  Serious: Yes (Life-Threatening, Hospitalization)
  Sender: FDA-Public Use
  Company Number: US-BOEHRINGER INGELHEIM PHARMMACEUTICALS, INC.-2004-BP-13857BP

PATIENT
  Age: 53 Year
  Sex: Female
  Weight: 120.2 kg

DRUGS (10)
  1. SPIRIVA [Suspect]
     Route: 055
     Dates: end: 20041119
  2. FLOVENT [Concomitant]
  3. SINGULAIR [Concomitant]
  4. PREDNISONE [Concomitant]
  5. METOCLOPRAMIDE [Concomitant]
  6. NEXIUM [Concomitant]
  7. ZANTAC [Concomitant]
  8. ZOLOFT [Concomitant]
  9. LOVASTATIN [Concomitant]
  10. ZETIA [Concomitant]

REACTIONS (3)
  - CHEST DISCOMFORT [None]
  - DYSPNOEA [None]
  - DYSPNOEA EXERTIONAL [None]
